FAERS Safety Report 25624324 (Version 1)
Quarter: 2025Q3

REPORT INFORMATION
  Report Type: Spontaneous
  Country: GB (occurrence: GB)
  Receive Date: 20250730
  Receipt Date: 20250730
  Transmission Date: 20251020
  Serious: Yes (Other)
  Sender: PFIZER
  Company Number: GB-MHRA-TPP16780083C9907200YC1753463994969

PATIENT
  Age: 16 Year
  Sex: Female
  Weight: 49 kg

DRUGS (5)
  1. DEPO-PROVERA [Suspect]
     Active Substance: MEDROXYPROGESTERONE ACETATE
     Dates: start: 20250702
  2. AMOXICILLIN\CLAVULANATE POTASSIUM [Concomitant]
     Active Substance: AMOXICILLIN\CLAVULANATE POTASSIUM
     Dosage: FREQ: 8 H; TAKE ONE 3 TIMES/DAY
     Dates: start: 20250716, end: 20250723
  3. FEXOFENADINE [Concomitant]
     Active Substance: FEXOFENADINE HYDROCHLORIDE
     Dosage: TAKE ONE DAILY
     Dates: start: 20250716
  4. HYDROCORTISONE [Concomitant]
     Active Substance: HYDROCORTISONE
     Dosage: FREQ:12 H; APPLY TO THE AFFECTED AREA(S) TWICE DAILY UNTIL...
  5. ETHINYL ESTRADIOL\LEVONORGESTREL [Concomitant]
     Active Substance: ETHINYL ESTRADIOL\LEVONORGESTREL
     Dosage: 1 A DAY AT THE SAME TIME DAILY FOR 21 DAYS THEN...
     Dates: start: 20231024

REACTIONS (5)
  - Swelling face [Unknown]
  - Angioedema [Unknown]
  - Rash pruritic [Unknown]
  - Rash erythematous [Unknown]
  - Rash macular [Recovering/Resolving]

NARRATIVE: CASE EVENT DATE: 20250701
